FAERS Safety Report 4807789-8 (Version None)
Quarter: 2005Q4

REPORT INFORMATION
  Report Type: 
  Country: None (occurrence: None)
  Receive Date: 20051021
  Receipt Date: 20011003
  Transmission Date: 20060501
  Serious: Yes (Hospitalization)
  Sender: FDA-Public Use
  Company Number: US_011074925

PATIENT
  Sex: Female

DRUGS (1)
  1. ZYPREXA [Suspect]
     Dates: start: 19981001

REACTIONS (2)
  - POLYCYTHAEMIA [None]
  - SUBARACHNOID HAEMORRHAGE [None]
